FAERS Safety Report 8553635-9 (Version None)
Quarter: 2012Q2

REPORT INFORMATION
  Report Type: 
  Country: None (occurrence: None)
  Receive Date: 20120417
  Receipt Date: 20110920
  Transmission Date: 20120825
  Serious: Yes (Other)
  Sender: FDA-Public Use
  Company Number: 11-595

PATIENT
  Age: 44 Year
  Sex: Male
  Weight: 63.49 kg

DRUGS (1)
  1. NAPROXEN SODIUM [Suspect]
     Indication: HEADACHE
     Dosage: 2DF / ONCE / ORAL
     Route: 048
     Dates: start: 20110916, end: 20110916

REACTIONS (1)
  - HYPERSENSITIVITY [None]
